FAERS Safety Report 7319314-0 (Version None)
Quarter: 2011Q1

REPORT INFORMATION
  Report Type: 
  Country: None (occurrence: None)
  Receive Date: 20110228
  Receipt Date: 20100127
  Transmission Date: 20110831
  Serious: Yes (Other)
  Sender: FDA-Public Use
  Company Number: A0841678A

PATIENT
  Sex: Female

DRUGS (5)
  1. LAMICTAL [Suspect]
     Dosage: 100MG TWICE PER DAY
     Route: 048
     Dates: start: 20080609
  2. MULTI-VITAMIN [Concomitant]
  3. MELATONIN [Concomitant]
  4. LAMICTAL XR [Suspect]
     Dosage: 100MG AT NIGHT
     Route: 048
     Dates: start: 20090801
  5. LAMOTRIGINE [Suspect]
     Dosage: 100MG TWICE PER DAY
     Route: 048

REACTIONS (3)
  - TREATMENT NONCOMPLIANCE [None]
  - CONVULSION [None]
  - SOMNOLENCE [None]
